FAERS Safety Report 19908811 (Version 1)
Quarter: 2021Q4

REPORT INFORMATION
  Report Type: Spontaneous
  Country: CA (occurrence: CA)
  Receive Date: 20211002
  Receipt Date: 20211002
  Transmission Date: 20220303
  Serious: Yes (Other)
  Sender: FDA-Public Use
  Company Number: CA-ROCHE-2923963

PATIENT
  Age: 60 Year
  Sex: Female
  Weight: 76 kg

DRUGS (13)
  1. RITUXIMAB [Suspect]
     Active Substance: RITUXIMAB
     Indication: Scleroderma
     Route: 041
  2. RITUXIMAB [Suspect]
     Active Substance: RITUXIMAB
     Indication: Rheumatoid arthritis
  3. RITUXIMAB [Suspect]
     Active Substance: RITUXIMAB
     Indication: Scleroderma
     Route: 065
  4. RITUXIMAB [Suspect]
     Active Substance: RITUXIMAB
     Indication: Rheumatoid arthritis
  5. LEVOTHYROXINE [Concomitant]
     Active Substance: LEVOTHYROXINE
  6. FOLIC ACID [Concomitant]
     Active Substance: FOLIC ACID
  7. LOSEC [Concomitant]
     Active Substance: OMEPRAZOLE
  8. METHOTREXATE [Concomitant]
     Active Substance: METHOTREXATE
     Route: 048
  9. MIRTAZAPINE [Concomitant]
     Active Substance: MIRTAZAPINE
  10. PREDNISONE [Concomitant]
     Active Substance: PREDNISONE
  11. RANITIDINE [Concomitant]
     Active Substance: RANITIDINE
  12. TRAZODONE [Concomitant]
     Active Substance: TRAZODONE HYDROCHLORIDE
  13. TYLENOL [Concomitant]
     Active Substance: ACETAMINOPHEN

REACTIONS (3)
  - Allergy to arthropod sting [Unknown]
  - Type 2 diabetes mellitus [Unknown]
  - Weight decreased [Unknown]
